FAERS Safety Report 4590603-6 (Version None)
Quarter: 2005Q1

REPORT INFORMATION
  Report Type: 
  Country: None (occurrence: None)
  Receive Date: 20050224
  Receipt Date: 20050125
  Transmission Date: 20050727
  Serious: Yes (Hospitalization)
  Sender: FDA-Public Use
  Company Number: PHFR2005GB00708

PATIENT
  Age: 67 Year
  Sex: Female
  Weight: 71 kg

DRUGS (2)
  1. FAMVIR [Suspect]
     Indication: HERPES ZOSTER
     Dosage: 750 MG, TID
     Route: 048
     Dates: start: 20050124, end: 20050124
  2. FAMVIR [Suspect]
     Dosage: 750 MG, QD
     Route: 048
     Dates: start: 20050125, end: 20050125

REACTIONS (6)
  - ACCIDENTAL OVERDOSE [None]
  - DIARRHOEA [None]
  - MALAISE [None]
  - MEDICATION ERROR [None]
  - NAUSEA [None]
  - VOMITING [None]
